FAERS Safety Report 6269356-1 (Version None)
Quarter: 2009Q3

REPORT INFORMATION
  Report Type: 
  Country: None (occurrence: None)
  Receive Date: 20090715
  Receipt Date: 20090708
  Transmission Date: 20100115
  Serious: Yes (Other)
  Sender: FDA-Public Use
  Company Number: CA-WATSON-2009-05297

PATIENT
  Age: 13 Year
  Sex: Female

DRUGS (1)
  1. TRIAMCINOLONE ACETONIDE [Suspect]
     Indication: DRUG USE FOR UNKNOWN INDICATION
     Dosage: TWO INJECTIONS THREE MONTHS APART
     Route: 031

REACTIONS (3)
  - INTRAOCULAR PRESSURE INCREASED [None]
  - RETINAL HAEMORRHAGE [None]
  - VISUAL ACUITY REDUCED [None]
